FAERS Safety Report 21556189 (Version 1)
Quarter: 2022Q4

REPORT INFORMATION
  Report Type: Spontaneous
  Country: AU (occurrence: AU)
  Receive Date: 20221104
  Receipt Date: 20221104
  Transmission Date: 20230113
  Serious: Yes (Hospitalization)
  Sender: FDA-Public Use
  Company Number: AU-MYLANLABS-2022M1120506

PATIENT
  Age: 37 Year
  Sex: Male

DRUGS (6)
  1. MYCOPHENOLATE MOFETIL [Suspect]
     Active Substance: MYCOPHENOLATE MOFETIL
     Indication: Gastrointestinal disorder
     Dosage: UNK
     Route: 065
  2. MYCOPHENOLATE MOFETIL [Suspect]
     Active Substance: MYCOPHENOLATE MOFETIL
     Indication: Immunodeficiency common variable
  3. RIFAXIMIN [Suspect]
     Active Substance: RIFAXIMIN
     Indication: Gastrointestinal disorder
     Dosage: UNK
     Route: 065
  4. RIFAXIMIN [Suspect]
     Active Substance: RIFAXIMIN
     Indication: Immunodeficiency common variable
  5. BUDESONIDE [Suspect]
     Active Substance: BUDESONIDE
     Indication: Gastrointestinal disorder
     Dosage: UNK
     Route: 048
  6. BUDESONIDE [Suspect]
     Active Substance: BUDESONIDE
     Indication: Immunodeficiency common variable

REACTIONS (1)
  - Treatment failure [Unknown]
